FAERS Safety Report 9308851 (Version 4)
Quarter: 2013Q4

REPORT INFORMATION
  Report Type: Report from Study
  Country: US (occurrence: US)
  Receive Date: 20130524
  Receipt Date: 20131218
  Transmission Date: 20140711
  Serious: Yes (Other)
  Sender: FDA-Public Use
  Company Number: US-ROCHE-1225017

PATIENT
  Age: 55 Year
  Sex: Female
  Weight: 105 kg

DRUGS (4)
  1. BEVACIZUMAB [Suspect]
     Indication: BREAST CANCER METASTATIC
     Dosage: 30-90 MIN ON 1 DAY, LAST DOSE 02/APR/2013
     Route: 042
     Dates: start: 20111018, end: 20130423
  2. LETROZOLE [Suspect]
     Indication: BREAST CANCER METASTATIC
     Dosage: LAST DOSE: 22/APR/2013
     Route: 065
  3. LETROZOLE [Suspect]
     Dosage: LAST DOSE: 10/OCT/2013
     Route: 065
  4. TAMOXIFEN [Concomitant]
     Route: 048

REACTIONS (4)
  - Myelofibrosis [Not Recovered/Not Resolved]
  - Proteinuria [Not Recovered/Not Resolved]
  - Renal impairment [Unknown]
  - Renal failure chronic [Not Recovered/Not Resolved]
